FAERS Safety Report 20724483 (Version 7)
Quarter: 2024Q1

REPORT INFORMATION
  Report Type: Other
  Country: CA (occurrence: None)
  Receive Date: 20220419
  Receipt Date: 20240116
  Transmission Date: 20240410
  Serious: Yes (Hospitalization, Other)
  Sender: FDA-Public Use
  Company Number: CA-ROCHE-3071262

PATIENT
  Sex: Female

DRUGS (2)
  1. OCREVUS [Suspect]
     Active Substance: OCRELIZUMAB
     Indication: Relapsing-remitting multiple sclerosis
     Dosage: 300 MG AT DAY 0 AND 14 THEN 600 MG EVERY 6 MONTH
     Route: 042
     Dates: start: 20170101
  2. OCREVUS [Suspect]
     Active Substance: OCRELIZUMAB
     Dosage: SCHEDULED FOR INFUSION ON 10/AUG/2023
     Route: 042

REACTIONS (18)
  - COVID-19 [Recovered/Resolved]
  - Multiple sclerosis [Not Recovered/Not Resolved]
  - Syncope [Unknown]
  - Therapeutic response shortened [Not Recovered/Not Resolved]
  - Vertigo [Not Recovered/Not Resolved]
  - B-lymphocyte count decreased [Unknown]
  - Concussion [Unknown]
  - Fatigue [Unknown]
  - Nausea [Unknown]
  - Feeling abnormal [Unknown]
  - Electric shock sensation [Unknown]
  - Gastrointestinal disorder [Unknown]
  - Fungal skin infection [Recovered/Resolved]
  - Tooth infection [Recovered/Resolved]
  - Ear infection [Recovering/Resolving]
  - Tympanic membrane perforation [Recovering/Resolving]
  - Off label use [Unknown]
  - Muscle spasms [Recovering/Resolving]
